FAERS Safety Report 13696004 (Version 1)
Quarter: 2017Q2

REPORT INFORMATION
  Report Type: Spontaneous
  Country: CA (occurrence: CA)
  Receive Date: 20170628
  Receipt Date: 20170628
  Transmission Date: 20170830
  Serious: Yes (Other)
  Sender: FDA-Public Use
  Company Number: CA-ASTRAZENECA-2017SE65793

PATIENT
  Age: 49 Year
  Sex: Female

DRUGS (5)
  1. DAXAS [Suspect]
     Active Substance: ROFLUMILAST
     Dosage: DOSE UNKNOWN
     Route: 048
  2. ACCOLATE [Suspect]
     Active Substance: ZAFIRLUKAST
     Dosage: DOSE UNKNOWN
     Route: 065
  3. OMNARIS [Suspect]
     Active Substance: CICLESONIDE
     Dosage: DOSE UNKNOWN
     Route: 045
  4. SYMBICORT [Suspect]
     Active Substance: BUDESONIDE\FORMOTEROL FUMARATE DIHYDRATE
     Dosage: DOSE UNKNOWN
     Route: 055
  5. ALVESCO [Suspect]
     Active Substance: CICLESONIDE
     Dosage: DOSE UNKNOWN
     Route: 055

REACTIONS (3)
  - Suicidal ideation [Unknown]
  - Depression [Unknown]
  - Weight increased [Unknown]
